FAERS Safety Report 6746687-X (Version None)
Quarter: 2010Q2

REPORT INFORMATION
  Report Type: 
  Country: None (occurrence: None)
  Receive Date: 20100528
  Receipt Date: 20100519
  Transmission Date: 20101027
  Serious: Yes (Other)
  Sender: FDA-Public Use
  Company Number: GB-PFIZER INC-2010063323

PATIENT
  Sex: Male

DRUGS (1)
  1. DALACIN [Suspect]

REACTIONS (1)
  - CHROMATURIA [None]
